FAERS Safety Report 16629214 (Version 2)
Quarter: 2019Q3

REPORT INFORMATION
  Report Type: Report from Study
  Country: None (occurrence: US)
  Receive Date: 20190725
  Receipt Date: 20190816
  Transmission Date: 20191004
  Serious: Yes (Other)
  Sender: FDA-Public Use
  Company Number: US-ABBVIE-19K-163-2846023-00

PATIENT
  Age: 35 Year
  Sex: Female
  Weight: 71.28 kg

DRUGS (4)
  1. UNITHROID [Concomitant]
     Active Substance: LEVOTHYROXINE SODIUM
     Indication: THYROIDECTOMY
  2. HUMIRA [Suspect]
     Active Substance: ADALIMUMAB
     Indication: ANKYLOSING SPONDYLITIS
     Route: 058
     Dates: start: 20181209, end: 20190623
  3. IBUPROFEN. [Concomitant]
     Active Substance: IBUPROFEN
     Indication: JOINT SWELLING
     Dosage: AS NEEDED
  4. TYLENOL [Concomitant]
     Active Substance: ACETAMINOPHEN
     Indication: JOINT SWELLING
     Dosage: AS NEEDED

REACTIONS (2)
  - Thyroid cancer recurrent [Not Recovered/Not Resolved]
  - Thyroglobulin increased [Not Recovered/Not Resolved]

NARRATIVE: CASE EVENT DATE: 2019
